FAERS Safety Report 15160775 (Version 1)
Quarter: 2018Q3

REPORT INFORMATION
  Report Type: Spontaneous
  Country: US (occurrence: US)
  Receive Date: 20180621
  Receipt Date: 20180621
  Transmission Date: 20181010
  Serious: No
  Sender: FDA-Public Use
  Company Number: None

PATIENT
  Age: 50 Year
  Sex: Female

DRUGS (1)
  1. KISQALI [Suspect]
     Active Substance: RIBOCICLIB
     Indication: BREAST CANCER FEMALE
     Dosage: 200MG DAILY 21 OR 28 DAYS ORAL
     Route: 048
     Dates: start: 20180313

REACTIONS (1)
  - Seizure [None]

NARRATIVE: CASE EVENT DATE: 20180601
